FAERS Safety Report 4786842-1 (Version None)
Quarter: 2005Q3

REPORT INFORMATION
  Report Type: 
  Country: None (occurrence: None)
  Receive Date: 20050930
  Receipt Date: 20050921
  Transmission Date: 20060218
  Serious: Yes (Death, Hospitalization)
  Sender: FDA-Public Use
  Company Number: COV2-2005-00427

PATIENT
  Age: 71 Year
  Sex: Female
  Weight: 98 kg

DRUGS (3)
  1. FOSRENOL [Suspect]
     Indication: HYPERPHOSPHATAEMIA
     Dosage: 500 MG, 3X/DAY; TID; ORAL
     Route: 048
     Dates: start: 20050614, end: 20050913
  2. THALIDOMIDE [Concomitant]
  3. NEXIUM [Concomitant]

REACTIONS (7)
  - ANAEMIA [None]
  - CARDIAC ARREST [None]
  - CARDIAC FAILURE CONGESTIVE [None]
  - DIALYSIS [None]
  - GASTRIC ULCER [None]
  - HYPOTENSION [None]
  - RESTRICTIVE CARDIOMYOPATHY [None]
